FAERS Safety Report 4549172-9 (Version None)
Quarter: 2005Q1

REPORT INFORMATION
  Report Type: 
  Country: None (occurrence: None)
  Receive Date: 20050111
  Receipt Date: 20041105
  Transmission Date: 20050727
  Serious: Yes (Other)
  Sender: FDA-Public Use
  Company Number: PHEH2004US11993

PATIENT
  Age: 71 Year
  Sex: Female

DRUGS (14)
  1. SLOW-K [Concomitant]
  2. DYAZIDE [Concomitant]
  3. PROZAC [Concomitant]
  4. BELLERGAL-S [Concomitant]
  5. SOTALOL HCL [Concomitant]
  6. VICODIN [Concomitant]
  7. ZESTRIL [Concomitant]
  8. CALCIUM D3 (NCH) [Concomitant]
  9. VITAMIN E [Concomitant]
  10. MAGNESIUM (NCH) [Concomitant]
  11. THERAGRAN-M [Concomitant]
  12. FEMARA [Concomitant]
  13. ZOMETA [Suspect]
     Dosage: 4 MG, QMO
     Dates: start: 20020724, end: 20031001
  14. ZOMETA [Suspect]
     Dosage: 4 MG, QMO
     Dates: start: 20040209

REACTIONS (18)
  - BACTERIAL INFECTION [None]
  - BLOOD CREATININE INCREASED [None]
  - BLOOD UREA INCREASED [None]
  - BONE DEBRIDEMENT [None]
  - FAILURE OF IMPLANT [None]
  - HAEMATOCRIT DECREASED [None]
  - HAEMOGLOBIN DECREASED [None]
  - INFECTION [None]
  - INFLAMMATION [None]
  - LOCALISED INFECTION [None]
  - OSTEOMYELITIS CHRONIC [None]
  - OSTEONECROSIS [None]
  - PAIN [None]
  - POST PROCEDURAL PAIN [None]
  - PRIMARY SEQUESTRUM [None]
  - RED BLOOD CELL COUNT DECREASED [None]
  - SEQUESTRECTOMY [None]
  - WOUND SECRETION [None]
